FAERS Safety Report 7479671-1 (Version None)
Quarter: 2011Q2

REPORT INFORMATION
  Report Type: 
  Country: None (occurrence: None)
  Receive Date: 20110513
  Receipt Date: 20110502
  Transmission Date: 20111010
  Serious: Yes (Other)
  Sender: FDA-Public Use
  Company Number: ES-ELI_LILLY_AND_COMPANY-ES201105001523

PATIENT
  Sex: Male
  Weight: 66 kg

DRUGS (4)
  1. MST [Concomitant]
     Indication: PAIN
     Dosage: UNK, BID
     Route: 048
  2. LYRICA [Concomitant]
     Indication: PAIN
     Dosage: UNK, EVERY 8 HRS
     Route: 048
  3. ALIMTA [Suspect]
     Indication: LUNG NEOPLASM MALIGNANT
     Dosage: UNK, UNKNOWN
     Route: 065
     Dates: start: 20110413, end: 20110413
  4. SEVREDOL [Concomitant]
     Indication: PAIN
     Dosage: UNK, EVERY 4 HRS
     Route: 048

REACTIONS (2)
  - BALANCE DISORDER [None]
  - DIZZINESS [None]
